FAERS Safety Report 9803923 (Version 1)
Quarter: 2014Q1

REPORT INFORMATION
  Report Type: Spontaneous
  Country: CL (occurrence: CL)
  Receive Date: 20140108
  Receipt Date: 20140108
  Transmission Date: 20141002
  Serious: Yes (Other)
  Sender: FDA-Public Use
  Company Number: CL-PFIZER INC-2014002570

PATIENT
  Age: 85 Year
  Sex: Female

DRUGS (6)
  1. XALATAN [Suspect]
     Indication: INTRAOCULAR PRESSURE TEST
     Dosage: 1 DROP PER EYE PER DAY
     Route: 047
     Dates: start: 2009
  2. GLUCOSAMINE [Concomitant]
  3. FISH OIL [Concomitant]
  4. GINKGO BILOBA [Concomitant]
  5. ASPIRINA INFANTIL [Concomitant]
  6. ZOPLICONE [Concomitant]

REACTIONS (5)
  - Thrombosis [Not Recovered/Not Resolved]
  - Visual acuity reduced [Not Recovered/Not Resolved]
  - Cataract [Unknown]
  - Fall [Unknown]
  - Limb injury [Unknown]
